FAERS Safety Report 10120284 (Version 3)
Quarter: 2014Q2

REPORT INFORMATION
  Report Type: Spontaneous
  Country: DE (occurrence: DE)
  Receive Date: 20140425
  Receipt Date: 20140627
  Transmission Date: 20141212
  Serious: Yes (Other)
  Sender: FDA-Public Use
  Company Number: DE-GILEAD-2014-0100441

PATIENT
  Age: 86 Year
  Sex: Female
  Weight: 75 kg

DRUGS (7)
  1. RANOLAZINE [Suspect]
     Indication: ANGINA PECTORIS
     Dosage: 375 MG, BID
     Route: 048
     Dates: start: 20121001, end: 20121002
  2. CORIFEO [Concomitant]
     Dosage: 5 MG, QD
     Dates: start: 201104
  3. CORDINATE [Concomitant]
     Indication: HYPERTENSION
     Dosage: 160 MG, BID
     Dates: start: 200801
  4. NITROLINGUAL [Concomitant]
     Dosage: UNK
     Dates: start: 199309
  5. FALITHROM [Concomitant]
     Indication: ATRIAL FIBRILLATION
     Dosage: UNK
     Dates: start: 201109
  6. L-THYROXIN [Concomitant]
     Indication: HYPOTHYROIDISM
     Dosage: 100 MG, QD
     Dates: start: 200210
  7. ZOPICLONE [Concomitant]
     Indication: SLEEP DISORDER
     Dosage: 7.5 MG, UNK
     Dates: start: 200410

REACTIONS (2)
  - Angina pectoris [Recovered/Resolved]
  - Asthenia [Recovered/Resolved]
